FAERS Safety Report 21451100 (Version 1)
Quarter: 2022Q4

REPORT INFORMATION
  Report Type: Spontaneous
  Country: US (occurrence: US)
  Receive Date: 20221013
  Receipt Date: 20221013
  Transmission Date: 20230113
  Serious: No
  Sender: FDA-Public Use
  Company Number: US-TRIS PHARMA, INC.-22US010475

PATIENT

DRUGS (2)
  1. QUILLIVANT XR [Suspect]
     Active Substance: METHYLPHENIDATE HYDROCHLORIDE
     Indication: Product used for unknown indication
     Dosage: 12 MILLILITRE, QD
     Route: 048
  2. QUILLIVANT XR [Suspect]
     Active Substance: METHYLPHENIDATE HYDROCHLORIDE
     Dosage: 10 MILLILITRE
     Route: 048
     Dates: start: 20201104

REACTIONS (3)
  - Headache [Not Recovered/Not Resolved]
  - Liquid product physical issue [Unknown]
  - Off label use [Unknown]

NARRATIVE: CASE EVENT DATE: 20201101
